FAERS Safety Report 11975289 (Version 1)
Quarter: 2016Q1

REPORT INFORMATION
  Report Type: Spontaneous
  Country: US (occurrence: US)
  Receive Date: 20160128
  Receipt Date: 20160128
  Transmission Date: 20160526
  Serious: Yes (Other)
  Sender: FDA-Public Use
  Company Number: US-DSJP-DSU-2015-120140

PATIENT

DRUGS (5)
  1. LANTUS [Concomitant]
     Active Substance: INSULIN GLARGINE
     Indication: PRODUCT USED FOR UNKNOWN INDICATION
     Dosage: 100 UNITS
  2. BENICAR HCT [Suspect]
     Active Substance: HYDROCHLOROTHIAZIDE\OLMESARTAN MEDOXOMIL
     Indication: HYPERTENSION
     Dosage: 40/25 MG, QD
     Route: 048
     Dates: start: 2011, end: 2013
  3. METFORMIN [Concomitant]
     Active Substance: METFORMIN HYDROCHLORIDE
     Indication: PRODUCT USED FOR UNKNOWN INDICATION
     Dosage: 1000 MG
  4. ATENOLOL. [Concomitant]
     Active Substance: ATENOLOL
     Indication: PRODUCT USED FOR UNKNOWN INDICATION
     Dosage: 50 MG
  5. LEVOTHYROXINE. [Concomitant]
     Active Substance: LEVOTHYROXINE
     Indication: PRODUCT USED FOR UNKNOWN INDICATION
     Dosage: 112 MCG

REACTIONS (9)
  - Renal failure [Unknown]
  - Adenomatous polyposis coli [Recovered/Resolved]
  - Anaemia [Unknown]
  - Malabsorption [Recovered/Resolved]
  - Hiatus hernia [Unknown]
  - Gastrooesophageal reflux disease [Unknown]
  - Irritable bowel syndrome [Unknown]
  - Gastrointestinal haemorrhage [Unknown]
  - Impaired gastric emptying [Unknown]

NARRATIVE: CASE EVENT DATE: 2011
